FAERS Safety Report 4478800-1 (Version None)
Quarter: 2004Q4

REPORT INFORMATION
  Report Type: 
  Country: None (occurrence: None)
  Receive Date: 20041019
  Receipt Date: 20041011
  Transmission Date: 20050328
  Serious: Yes (Other)
  Sender: FDA-Public Use
  Company Number: PHNU2004DE03485

PATIENT
  Sex: Male

DRUGS (3)
  1. ZOMETA [Suspect]
     Dosage: 4 MG, ONCE/SINGLE
     Dates: start: 20040806, end: 20040806
  2. ZOMETA [Suspect]
     Dosage: 4 MG, ONCE/SINGLE
     Dates: start: 20040903, end: 20040903
  3. ZOMETA [Suspect]
     Dosage: 4 MG, QMO
     Dates: start: 20040501, end: 20040701

REACTIONS (4)
  - DYSPHAGIA [None]
  - OROPHARYNGEAL SWELLING [None]
  - SPEECH DISORDER [None]
  - SWOLLEN TONGUE [None]
